FAERS Safety Report 12818446 (Version 2)
Quarter: 2016Q4

REPORT INFORMATION
  Report Type: Spontaneous
  Country: DE (occurrence: DE)
  Receive Date: 20161006
  Receipt Date: 20161031
  Transmission Date: 20170207
  Serious: Yes (Other)
  Sender: FDA-Public Use
  Company Number: DE-VALIDUS PHARMACEUTICALS LLC-DE-2016VAL002789

PATIENT
  Age: 1 Day
  Sex: Male
  Weight: 2.7 kg

DRUGS (1)
  1. METOPROLOL. [Suspect]
     Active Substance: METOPROLOL
     Indication: HYPERTENSION
     Dosage: 47.5 MG, QD
     Route: 063

REACTIONS (2)
  - Neonatal tachycardia [Not Recovered/Not Resolved]
  - Small for dates baby [Recovering/Resolving]

NARRATIVE: CASE EVENT DATE: 20160607
